FAERS Safety Report 4668846-2 (Version None)
Quarter: 2005Q2

REPORT INFORMATION
  Report Type: 
  Country: None (occurrence: None)
  Receive Date: 20050523
  Receipt Date: 20050511
  Transmission Date: 20051028
  Serious: Yes (Other)
  Sender: FDA-Public Use
  Company Number: US-MERCK-0505USA01393

PATIENT
  Age: 70 Year
  Sex: Female

DRUGS (4)
  1. COZAAR [Suspect]
     Route: 048
     Dates: end: 20050101
  2. COZAAR [Suspect]
     Route: 048
     Dates: start: 20050101
  3. TICLID [Suspect]
     Route: 065
     Dates: end: 20050101
  4. TICLID [Suspect]
     Route: 065
     Dates: start: 20050101

REACTIONS (2)
  - CARDIAC DISORDER [None]
  - HOT FLUSH [None]
